FAERS Safety Report 23578085 (Version 1)
Quarter: 2024Q1

REPORT INFORMATION
  Report Type: Spontaneous
  Country: US (occurrence: US)
  Receive Date: 20240229
  Receipt Date: 20240229
  Transmission Date: 20240409
  Serious: No
  Sender: FDA-Public Use
  Company Number: None

PATIENT
  Age: 26 Year
  Sex: Male

DRUGS (5)
  1. RILPIVIRINE [Suspect]
     Active Substance: RILPIVIRINE
     Indication: HIV infection
     Dosage: UNK (600MG/3ML-900MG/3ML INJECT 1 EACH INTO THE MUSCLE ONCE FOR 1 DOSE)
     Route: 030
     Dates: start: 20231214, end: 20231214
  2. CABOTEGRAVIR [Suspect]
     Active Substance: CABOTEGRAVIR
     Indication: HIV infection
     Dosage: UNK (600MG/3ML-900MG/3ML INJECT 1 EACH INTO THE MUSCLE ONCE FOR 1 DOSE)
     Route: 030
     Dates: start: 20231214, end: 20231214
  3. DOVATO [Suspect]
     Active Substance: DOLUTEGRAVIR SODIUM\LAMIVUDINE
     Indication: HIV infection
     Dosage: 1 DF, QD (IN MORNING, 50-300 MG)
     Route: 048
  4. GENVOYA [Suspect]
     Active Substance: COBICISTAT\ELVITEGRAVIR\EMTRICITABINE\TENOFOVIR ALAFENAMIDE FUMARATE
     Indication: HIV infection
     Dosage: UNK
     Route: 065
     Dates: start: 20171115
  5. WEGOVY [Concomitant]
     Active Substance: SEMAGLUTIDE
     Indication: Weight decreased
     Dosage: 1 MG, WE (1MG/0.5ML PEN INJECTOR INJECTION, DISPENSE: 2ML, REFILL: 3)
     Route: 058

REACTIONS (5)
  - Depression [Unknown]
  - Middle insomnia [Unknown]
  - Bronchitis [Unknown]
  - COVID-19 [Unknown]
  - Treatment noncompliance [Unknown]
